FAERS Safety Report 12173302 (Version 1)
Quarter: 2016Q1

REPORT INFORMATION
  Report Type: Report from Study
  Country: AU (occurrence: AU)
  Receive Date: 20160311
  Receipt Date: 20160311
  Transmission Date: 20160526
  Serious: Yes (Hospitalization)
  Sender: FDA-Public Use
  Company Number: AU-ABBVIE-16P-008-1578693-00

PATIENT
  Sex: Male

DRUGS (4)
  1. VIEKIRA PAK [Suspect]
     Active Substance: DASABUVIR\OMBITASVIR\PARITAPREVIR\RITONAVIR
     Indication: HEPATITIS C
     Dosage: AV1: X 2 IN MORNINGAV2: X1 BIDAILY
     Route: 048
     Dates: start: 20151205
  2. VIEKIRA PAK [Suspect]
     Active Substance: DASABUVIR\OMBITASVIR\PARITAPREVIR\RITONAVIR
     Dosage: AV1: X 2 IN MORNING?AV2: X1 BIDAILY
     Route: 048
  3. RIBAVIRIN. [Suspect]
     Active Substance: RIBAVIRIN
     Dosage: 600MG X 2 AT NIGHT
     Route: 048
  4. RIBAVIRIN. [Suspect]
     Active Substance: RIBAVIRIN
     Indication: HEPATITIS C
     Dosage: 600MG X 2 AT NIGHT
     Route: 048
     Dates: start: 20151205

REACTIONS (6)
  - Peripheral swelling [Unknown]
  - Erectile dysfunction [Unknown]
  - Therapeutic response unexpected [Unknown]
  - Foreign body [Unknown]
  - Pain [Unknown]
  - Inappropriate schedule of drug administration [Unknown]
